FAERS Safety Report 6489292-5 (Version None)
Quarter: 2009Q4

REPORT INFORMATION
  Report Type: 
  Country: None (occurrence: None)
  Receive Date: 20091123
  Receipt Date: 20090820
  Transmission Date: 20100525
  Serious: No
  Sender: FDA-Public Use
  Company Number: 8050717

PATIENT
  Age: 47 Year
  Sex: Male
  Weight: 56.5635 kg

DRUGS (2)
  1. CIMZIA [Suspect]
     Indication: CROHN'S DISEASE
     Dosage: 400 MG 1/W SC
     Route: 058
     Dates: start: 20090722
  2. CIMZIA [Suspect]
     Indication: CROHN'S DISEASE
     Dosage: 40 MG SC
     Route: 058

REACTIONS (2)
  - ARTHRALGIA [None]
  - INCORRECT DOSE ADMINISTERED [None]
